FAERS Safety Report 26021608 (Version 1)
Quarter: 2025Q4

REPORT INFORMATION
  Report Type: Spontaneous
  Country: KR (occurrence: KR)
  Receive Date: 20251110
  Receipt Date: 20251110
  Transmission Date: 20260117
  Serious: Yes (Life-Threatening, Hospitalization, Other)
  Sender: ROCHE
  Company Number: KR-ROCHE-10000427406

PATIENT
  Age: 45 Year
  Sex: Male

DRUGS (1)
  1. AVASTIN [Suspect]
     Active Substance: BEVACIZUMAB
     Indication: Hepatocellular carcinoma
     Route: 065
     Dates: start: 20230317

REACTIONS (3)
  - Immune-mediated encephalitis [Recovering/Resolving]
  - Immune-mediated neuropathy [Recovering/Resolving]
  - Off label use [Unknown]
